FAERS Safety Report 10146549 (Version 2)
Quarter: 2014Q2

REPORT INFORMATION
  Report Type: Spontaneous
  Country: US (occurrence: US)
  Receive Date: 20140501
  Receipt Date: 20140623
  Transmission Date: 20141212
  Serious: Yes (Other)
  Sender: FDA-Public Use
  Company Number: US-GILEAD-2014-0100913

PATIENT
  Age: 59 Year
  Sex: Female

DRUGS (8)
  1. SOVALDI [Suspect]
     Indication: HEPATITIS C
     Dosage: 400 MG, QD
     Route: 048
     Dates: start: 20140224, end: 20140526
  2. RIBAPAK [Suspect]
     Indication: HEPATITIS C
     Dosage: 1000 MG, QD
     Route: 048
     Dates: start: 20140224, end: 20140425
  3. PEGINTRON /01543001/ [Concomitant]
     Indication: HEPATITIS C
     Dosage: 150 MCG WEEKLY
     Route: 058
     Dates: start: 20140224, end: 20140519
  4. LEVOCARNITINE [Concomitant]
     Indication: AMMONIA INCREASED
     Dosage: 330 MG, UNK
     Route: 048
     Dates: start: 20130701
  5. ALDACTONE                          /00006201/ [Concomitant]
     Indication: PRODUCT USED FOR UNKNOWN INDICATION
     Dosage: 25 MG, UNK
     Route: 048
     Dates: start: 20130701
  6. LACTULOSE [Concomitant]
     Indication: AMMONIA INCREASED
     Dosage: 15 ML, UNK
     Route: 048
     Dates: start: 20130729
  7. ALPHA LIPOIC ACID [Concomitant]
     Indication: HEPATIC STEATOSIS
     Dosage: 200 MG, UNK
     Route: 048
     Dates: start: 20131106
  8. PREVACID [Concomitant]
     Indication: GASTROOESOPHAGEAL REFLUX DISEASE
     Dosage: 30 MG, UNK
     Route: 048
     Dates: start: 20140115

REACTIONS (3)
  - Anaemia [Recovered/Resolved]
  - Haemoglobin decreased [Unknown]
  - Haematocrit decreased [Unknown]
